FAERS Safety Report 7723069-5 (Version None)
Quarter: 2011Q3

REPORT INFORMATION
  Report Type: 
  Country: None (occurrence: None)
  Receive Date: 20110901
  Receipt Date: 20110823
  Transmission Date: 20111222
  Serious: Yes (Hospitalization)
  Sender: FDA-Public Use
  Company Number: FR-JNJFOC-20110407691

PATIENT
  Sex: Female

DRUGS (12)
  1. LISINOPRIL [Suspect]
     Indication: HYPERTENSION
     Route: 048
     Dates: end: 20101205
  2. DURAGESIC-100 [Suspect]
     Indication: ARTERIAL DISORDER
     Route: 062
     Dates: end: 20101204
  3. DIAMICRON [Suspect]
     Indication: PRODUCT USED FOR UNKNOWN INDICATION
     Route: 048
     Dates: end: 20101205
  4. LERCANIDIPINE [Suspect]
     Indication: HYPERTENSION
     Route: 048
     Dates: end: 20101205
  5. LEVOTHYROXINE SODIUM [Concomitant]
     Indication: HYPOTHYROIDISM
     Route: 048
  6. CIPROFLOXACIN HCL [Concomitant]
     Indication: PRODUCT USED FOR UNKNOWN INDICATION
     Route: 048
     Dates: start: 20101209, end: 20101215
  7. FLUINDIONE [Suspect]
     Indication: ARRHYTHMIA
     Route: 048
     Dates: end: 20101203
  8. FUROSEMIDE [Concomitant]
     Indication: HYPERTENSION
     Route: 048
     Dates: end: 20101214
  9. VANCOMYCIN [Concomitant]
     Indication: PRODUCT USED FOR UNKNOWN INDICATION
     Route: 042
     Dates: start: 20101205, end: 20101205
  10. GLUCOPHAGE [Suspect]
     Indication: TYPE 2 DIABETES MELLITUS
     Route: 048
     Dates: end: 20101205
  11. HYDROCHLOROTHIAZIDE [Suspect]
     Indication: HYPERTENSION
     Route: 048
     Dates: end: 20101205
  12. AMIODARONE HCL [Concomitant]
     Indication: ARRHYTHMIA
     Route: 048

REACTIONS (1)
  - RENAL FAILURE ACUTE [None]
